FAERS Safety Report 6456217-8 (Version None)
Quarter: 2009Q4

REPORT INFORMATION
  Report Type: 
  Country: None (occurrence: None)
  Receive Date: 20091125
  Receipt Date: 20091111
  Transmission Date: 20100525
  Serious: Yes (Other)
  Sender: FDA-Public Use
  Company Number: GR-ELI_LILLY_AND_COMPANY-GR200911002761

PATIENT
  Age: 68 Year
  Sex: Female
  Weight: 100 kg

DRUGS (4)
  1. FORTEO [Suspect]
     Indication: OSTEOPOROSIS
     Dosage: 20 UG, DAILY (1/D)
     Route: 058
     Dates: start: 20070509, end: 20091109
  2. MODURETIC 5-50 [Concomitant]
     Indication: HYPERTENSION
     Dosage: 5 MG, DAILY (1/D)
     Route: 048
     Dates: start: 20060101
  3. MODURETIC 5-50 [Concomitant]
     Dosage: 50 MG, DAILY (1/D)
     Route: 048
  4. CALCIUM /N/A/ [Concomitant]
     Dates: start: 20060101

REACTIONS (1)
  - INTERVERTEBRAL DISC PROTRUSION [None]
